FAERS Safety Report 20625066 (Version 2)
Quarter: 2022Q2

REPORT INFORMATION
  Report Type: Other
  Country: PE (occurrence: PE)
  Receive Date: 20220323
  Receipt Date: 20220401
  Transmission Date: 20220721
  Serious: Yes (Hospitalization, Other)
  Sender: FDA-Public Use
  Company Number: PE-BoehringerIngelheim-2022-BI-160262

PATIENT
  Age: 76 Year
  Sex: Female
  Weight: 90 kg

DRUGS (1)
  1. ALTEPLASE [Suspect]
     Active Substance: ALTEPLASE
     Indication: Ischaemic stroke
     Route: 042

REACTIONS (4)
  - Subarachnoid haemorrhage [Unknown]
  - Haemorrhagic transformation stroke [Unknown]
  - Cerebral haematoma [Unknown]
  - Aneurysm ruptured [Unknown]
